FAERS Safety Report 7568203-5 (Version None)
Quarter: 2011Q2

REPORT INFORMATION
  Report Type: 
  Country: None (occurrence: None)
  Receive Date: 20110617
  Receipt Date: 20110604
  Transmission Date: 20111010
  Serious: Yes (Hospitalization)
  Sender: FDA-Public Use
  Company Number: 2011AP001148

PATIENT
  Sex: Male

DRUGS (1)
  1. LAMOTRIGINE [Suspect]
     Dosage: 25MG;QD;TRPL ; 50 MG;QD;TRPL
     Route: 064

REACTIONS (3)
  - OXYGEN SATURATION DECREASED [None]
  - NEONATAL INFECTION [None]
  - MATERNAL DRUGS AFFECTING FOETUS [None]
